FAERS Safety Report 22520888 (Version 1)
Quarter: 2023Q2

REPORT INFORMATION
  Report Type: Spontaneous
  Country: US (occurrence: None)
  Receive Date: 20230602
  Receipt Date: 20230602
  Transmission Date: 20230722
  Serious: Yes (Hospitalization)
  Sender: FDA-Public Use
  Company Number: None

PATIENT
  Age: 62 Year
  Sex: Female

DRUGS (1)
  1. LENALIDOMIDE [Suspect]
     Active Substance: LENALIDOMIDE
     Dosage: 25MG DAILY ORAL?
     Route: 048

REACTIONS (4)
  - Therapy interrupted [None]
  - Infusion related reaction [None]
  - Pneumonia [None]
  - Bone pain [None]

NARRATIVE: CASE EVENT DATE: 20230520
